FAERS Safety Report 9378290 (Version 1)
Quarter: 2013Q3

REPORT INFORMATION
  Report Type: Spontaneous
  Country: JP (occurrence: JP)
  Receive Date: 20130701
  Receipt Date: 20130701
  Transmission Date: 20140515
  Serious: Yes (Other)
  Sender: FDA-Public Use
  Company Number: JP-UCBSA-090515

PATIENT
  Sex: 0

DRUGS (3)
  1. CIMZIA [Suspect]
     Indication: RHEUMATOID ARTHRITIS
     Dosage: DOSE: 400MG
     Route: 058
  2. RHEUMATREX [Concomitant]
     Dosage: DOSE- 6MG/WEEK
     Route: 048
  3. PARIET [Concomitant]
     Dosage: UNKNOWN
     Route: 048

REACTIONS (1)
  - Oral candidiasis [Not Recovered/Not Resolved]
